FAERS Safety Report 9843163 (Version 2)
Quarter: 2014Q1

REPORT INFORMATION
  Report Type: Report from Study
  Country: GB (occurrence: GB)
  Receive Date: 20140124
  Receipt Date: 20140124
  Transmission Date: 20141002
  Serious: Yes (Hospitalization, Other)
  Sender: FDA-Public Use
  Company Number: GB-ABBVIE-14P-167-1193913-00

PATIENT
  Age: 72 Year
  Sex: Female
  Weight: 60 kg

DRUGS (10)
  1. DUODOPA [Suspect]
     Indication: PARKINSON^S DISEASE
     Dosage: 100MLS/24HRS PEJ
     Dates: start: 20130121
  2. METFORMIN [Concomitant]
     Indication: DIABETES MELLITUS
     Route: 048
     Dates: start: 2003
  3. EZETIMIBE [Concomitant]
     Indication: HYPERCHOLESTEROLAEMIA
     Route: 048
  4. DULOXETINE [Concomitant]
     Indication: DEPRESSION
     Route: 048
     Dates: start: 200806
  5. AMANTADINE [Concomitant]
     Indication: PARKINSON^S DISEASE
     Route: 048
     Dates: start: 200601
  6. CO CARELDOPA [Concomitant]
     Indication: PARKINSON^S DISEASE
     Dosage: 175/700
     Route: 048
     Dates: start: 1996
  7. CLONAZEPAM [Concomitant]
     Indication: RAPID EYE MOVEMENTS SLEEP ABNORMAL
     Route: 048
  8. PRAMIPEXOLE [Concomitant]
     Indication: PARKINSON^S DISEASE
     Route: 048
     Dates: start: 201308
  9. FOLIC ACID [Concomitant]
     Indication: VITAMIN B12 DEFICIENCY
     Route: 048
     Dates: start: 201309
  10. OMEPRAZOLE [Concomitant]
     Indication: PRODUCT USED FOR UNKNOWN INDICATION
     Route: 048

REACTIONS (3)
  - Hypoaesthesia [Recovered/Resolved with Sequelae]
  - Pain in extremity [Recovered/Resolved with Sequelae]
  - Guillain-Barre syndrome [Unknown]
